FAERS Safety Report 21350500 (Version 1)
Quarter: 2022Q3

REPORT INFORMATION
  Report Type: Spontaneous
  Country: JP (occurrence: JP)
  Receive Date: 20220919
  Receipt Date: 20220919
  Transmission Date: 20221027
  Serious: Yes (Hospitalization, Other)
  Sender: FDA-Public Use
  Company Number: JP-OTSUKA-2022_045214

PATIENT
  Age: 8 Year
  Sex: Female
  Weight: 25.6 kg

DRUGS (2)
  1. ABILIFY [Suspect]
     Active Substance: ARIPIPRAZOLE
     Indication: Attention deficit hyperactivity disorder
     Dosage: UNK
     Route: 048
  2. GUANFACINE HYDROCHLORIDE [Suspect]
     Active Substance: GUANFACINE HYDROCHLORIDE
     Indication: Attention deficit hyperactivity disorder
     Dosage: UNK
     Route: 048

REACTIONS (2)
  - Type 1 diabetes mellitus [Recovering/Resolving]
  - Diabetic ketoacidosis [Recovering/Resolving]
